FAERS Safety Report 14243225 (Version 2)
Quarter: 2017Q4

REPORT INFORMATION
  Report Type: Spontaneous
  Country: US (occurrence: US)
  Receive Date: 20171201
  Receipt Date: 20171205
  Transmission Date: 20180321
  Serious: No
  Sender: FDA-Public Use
  Company Number: US-PFIZER INC-2017514854

PATIENT
  Age: 44 Year
  Sex: Male

DRUGS (2)
  1. NEURONTIN [Suspect]
     Active Substance: GABAPENTIN
     Indication: SOFT TISSUE INJURY
  2. NEURONTIN [Suspect]
     Active Substance: GABAPENTIN
     Indication: NERVE INJURY
     Dosage: 900 MG,(THREE 300MG) 2X/DAY
     Dates: start: 201612

REACTIONS (4)
  - Product use in unapproved indication [Unknown]
  - Intentional product misuse [Unknown]
  - Loss of personal independence in daily activities [Unknown]
  - Malaise [Unknown]
